FAERS Safety Report 18582111 (Version 1)
Quarter: 2020Q4

REPORT INFORMATION
  Report Type: Spontaneous
  Country: US (occurrence: US)
  Receive Date: 20201204
  Receipt Date: 20201204
  Transmission Date: 20210114
  Serious: No
  Sender: FDA-Public Use
  Company Number: None

PATIENT
  Age: 68 Year
  Sex: Female
  Weight: 64.8 kg

DRUGS (1)
  1. NP THYROID [Suspect]
     Active Substance: LEVOTHYROXINE\LIOTHYRONINE
     Indication: HYPOTHYROIDISM
     Dosage: ?          QUANTITY:3 TABLET(S);?

REACTIONS (8)
  - Hypertension [None]
  - Dry mouth [None]
  - Tendon pain [None]
  - Fatigue [None]
  - Heart rate increased [None]
  - Tremor [None]
  - Myalgia [None]
  - Oral pain [None]

NARRATIVE: CASE EVENT DATE: 20201126
